FAERS Safety Report 6438359-6 (Version None)
Quarter: 2009Q4

REPORT INFORMATION
  Report Type: 
  Country: None (occurrence: None)
  Receive Date: 20091109
  Receipt Date: 20091027
  Transmission Date: 20100525
  Serious: Yes (Other)
  Sender: FDA-Public Use
  Company Number: CIP09002994

PATIENT
  Age: 11 Year
  Sex: Female

DRUGS (3)
  1. ASACOL [Suspect]
     Indication: COLITIS ULCERATIVE
     Dosage: 2000 MG DAILY, ORAL
     Route: 048
  2. PREDNISOLONE [Concomitant]
  3. SULPHASALAZINE (SULFASALAZINE) SUPPOSITORY [Concomitant]

REACTIONS (6)
  - BLOOD CREATINE PHOSPHOKINASE INCREASED [None]
  - DRUG HYPERSENSITIVITY [None]
  - ELECTROCARDIOGRAM ST-T CHANGE [None]
  - MUSCLE INJURY [None]
  - MYALGIA [None]
  - MYOPATHY TOXIC [None]
